FAERS Safety Report 7511161-X (Version None)
Quarter: 2011Q2

REPORT INFORMATION
  Report Type: 
  Country: None (occurrence: None)
  Receive Date: 20110531
  Receipt Date: 20091123
  Transmission Date: 20111010
  Serious: Yes (Death, Hospitalization, Other)
  Sender: FDA-Public Use
  Company Number: US-BAYER-200940952NA

PATIENT
  Age: 30 Year
  Sex: Male

DRUGS (18)
  1. SPIRONOLACTONE [Concomitant]
     Dosage: 25 MG DAILY
     Route: 048
  2. TRASYLOL [Suspect]
     Indication: HEART TRANSPLANT
     Dosage: INITIAL (TEST) DOSE OF 1 ML
     Route: 042
     Dates: start: 20070715, end: 20070715
  3. ALTACE [Concomitant]
     Route: 048
  4. HEPARIN [Concomitant]
     Dosage: UNK
     Dates: start: 20070715
  5. CRYOPRECIPITATES [Concomitant]
     Dosage: 40
     Dates: start: 20070715
  6. LASIX [Concomitant]
     Dosage: 40 MG DAILY
     Route: 048
  7. COREG [Concomitant]
     Dosage: 3.125 MG
     Route: 048
  8. PROTAMINE SULFATE [Concomitant]
     Dosage: UNK
     Route: 042
     Dates: start: 20070715
  9. PLATELETS [Concomitant]
     Dosage: UNK
     Dates: start: 20070715
  10. TRASYLOL [Suspect]
     Dosage: 200 ML APROTININ 100,000 UNITS IN 100ML STERILE WATER, INTRAVENOUS AT 500,000 UNITS
     Route: 042
     Dates: start: 20070715, end: 20070715
  11. ACETYLSALICYLIC ACID SRT [Concomitant]
     Dosage: 81 MG DAILY
     Route: 048
  12. DIGOXIN [Concomitant]
     Dosage: 0.125 MG
     Route: 048
  13. PLASMA [Concomitant]
     Dosage: 7 UNITS
     Dates: start: 20070715
  14. ALBUMIN (HUMAN) [Concomitant]
     Dosage: 50 CC
     Dates: start: 20070715
  15. AMIODARONE HCL [Concomitant]
     Dosage: 200 MG
     Route: 048
  16. LISINOPRIL [Concomitant]
     Dosage: 5 MG
     Route: 048
  17. COUMADIN [Concomitant]
     Dosage: 10 MG
     Route: 048
  18. LASIX [Concomitant]
     Dosage: 20 MG / 80 MG
     Dates: start: 20070715

REACTIONS (10)
  - INJURY [None]
  - ANXIETY [None]
  - ANHEDONIA [None]
  - CARDIOGENIC SHOCK [None]
  - PAIN [None]
  - FEAR [None]
  - UNEVALUABLE EVENT [None]
  - DEATH [None]
  - RENAL FAILURE [None]
  - DEPRESSION [None]
